FAERS Safety Report 12401952 (Version 2)
Quarter: 2016Q3

REPORT INFORMATION
  Report Type: Spontaneous
  Country: US (occurrence: US)
  Receive Date: 20160525
  Receipt Date: 20160721
  Transmission Date: 20161109
  Serious: Yes (Death, Hospitalization)
  Sender: FDA-Public Use
  Company Number: US-INSYS THERAPEUTICS, INC-INS201605-000227

PATIENT
  Age: 58 Year
  Sex: Male

DRUGS (4)
  1. OXYCODONE [Suspect]
     Active Substance: OXYCODONE
     Indication: COMPLETED SUICIDE
  2. ALPRAZOLAM. [Suspect]
     Active Substance: ALPRAZOLAM
     Indication: COMPLETED SUICIDE
  3. FENTANYL. [Suspect]
     Active Substance: FENTANYL
     Indication: COMPLETED SUICIDE
     Route: 048
  4. LORAZEPAM. [Suspect]
     Active Substance: LORAZEPAM

REACTIONS (3)
  - Completed suicide [Fatal]
  - Pulseless electrical activity [Unknown]
  - Overdose [Unknown]

NARRATIVE: CASE EVENT DATE: 20140917
